FAERS Safety Report 10272371 (Version 1)
Quarter: 2014Q2

REPORT INFORMATION
  Report Type: Spontaneous
  Country: US (occurrence: None)
  Receive Date: 20140627
  Receipt Date: 20140627
  Transmission Date: 20141212
  Serious: Yes (Hospitalization, Disabling, Other)
  Sender: FDA-Public Use
  Company Number: 2014EDG00004

PATIENT
  Age: 66 Year
  Sex: Female

DRUGS (18)
  1. FLUOXETINE (FLUOXETINE) [Suspect]
  2. KETOROLAC [Suspect]
     Indication: PAIN
     Route: 030
  3. KETOROLAC [Suspect]
     Indication: MUSCLE SPASMS
     Route: 030
  4. FISH OIL [Suspect]
  5. VITAMIN E [Suspect]
  6. METHYLPREDNISOLONE ACETATE (METHYLPREDNISOLONE ACETATE) [Concomitant]
  7. LEVOTHYROXINE [Concomitant]
  8. ATORVASTATIN [Concomitant]
  9. SEROQUEL (QUETIAPINE), 50 MG [Concomitant]
  10. CARVEDILOL [Concomitant]
  11. GABAPENTIN [Concomitant]
  12. DOCUSATE [Concomitant]
  13. FENTANYL PATCH [Concomitant]
  14. CARISOPRODOL [Concomitant]
  15. OMEPRAZOLE [Concomitant]
  16. OMEPRAZOLE [Concomitant]
  17. FERROUS SULFATE [Concomitant]
  18. LIDOCAINE [Concomitant]

REACTIONS (6)
  - Drug interaction [None]
  - Spinal epidural haematoma [None]
  - Quadriplegia [None]
  - Spinal cord compression [None]
  - Faecal incontinence [None]
  - Urinary incontinence [None]
